FAERS Safety Report 12880252 (Version 1)
Quarter: 2016Q4

REPORT INFORMATION
  Report Type: Spontaneous
  Country: US (occurrence: US)
  Receive Date: 20161025
  Receipt Date: 20161025
  Transmission Date: 20170207
  Serious: No
  Sender: FDA-Public Use
  Company Number: None

PATIENT
  Sex: Female

DRUGS (2)
  1. ALPRAZOLAM EXTENDED RELEASE [Suspect]
     Active Substance: ALPRAZOLAM
  2. ALPRAZOLAM. [Suspect]
     Active Substance: ALPRAZOLAM

REACTIONS (11)
  - Headache [None]
  - Depression [None]
  - Insomnia [None]
  - Night sweats [None]
  - Impaired work ability [None]
  - Suicidal ideation [None]
  - Fear [None]
  - Memory impairment [None]
  - Drug dispensing error [None]
  - Activities of daily living impaired [None]
  - Condition aggravated [None]

NARRATIVE: CASE EVENT DATE: 2016
